FAERS Safety Report 4542520-5 (Version None)
Quarter: 2004Q4

REPORT INFORMATION
  Report Type: 
  Country: None (occurrence: None)
  Receive Date: 20041227
  Receipt Date: 20041216
  Transmission Date: 20050328
  Serious: Yes (Other)
  Sender: FDA-Public Use
  Company Number: 2004083933

PATIENT
  Sex: Female
  Weight: 72.5755 kg

DRUGS (4)
  1. LIPITOR [Suspect]
     Indication: BLOOD CHOLESTEROL INCREASED
     Dosage: 20 MG (20 MG, 1 IN 1 D), ORAL
     Route: 048
     Dates: start: 19970101
  2. PROPACET 100 [Suspect]
     Indication: ARTHRITIS
     Dosage: ORAL
     Route: 048
  3. VALSARTAN(VALSARTAN) [Concomitant]
  4. ESOMEPRAZOLE(ESOMEPRAZOLE) [Concomitant]

REACTIONS (3)
  - ARTHRITIS [None]
  - FIBROMYALGIA [None]
  - INFLUENZA LIKE ILLNESS [None]
